FAERS Safety Report 7749657-8 (Version None)
Quarter: 2011Q3

REPORT INFORMATION
  Report Type: 
  Country: None (occurrence: None)
  Receive Date: 20110914
  Receipt Date: 20110902
  Transmission Date: 20111222
  Serious: Yes (Other)
  Sender: FDA-Public Use
  Company Number: BR-BAYER-2011-083550

PATIENT
  Age: 54 Year
  Sex: Female
  Weight: 64 kg

DRUGS (11)
  1. PROMETAZIN [Concomitant]
     Indication: ERYTHEMA
     Dosage: 25 MG, BID
     Route: 048
     Dates: start: 20101221, end: 20110121
  2. DEXAMETHASONE [Concomitant]
     Dosage: UNK
     Route: 061
     Dates: start: 20101221, end: 20110121
  3. LOPERAMIDE [Concomitant]
     Dosage: 2 MG, QID
     Route: 048
     Dates: start: 20101210, end: 20110110
  4. NEXAVAR [Suspect]
     Dosage: 400 MG, BID
     Route: 048
     Dates: start: 20101210, end: 20101217
  5. RANITIDINE [Concomitant]
     Dosage: 300 MG, OM
     Route: 048
     Dates: start: 20101210, end: 20110110
  6. DEXAMETHASONE [Concomitant]
     Dosage: UNK
     Route: 061
     Dates: start: 20110209, end: 20110302
  7. OMEPRAZOLE [Concomitant]
     Dosage: 20 MG, QD
     Route: 048
     Dates: start: 20110121, end: 20110309
  8. NEXAVAR [Suspect]
     Indication: HEPATIC NEOPLASM MALIGNANT
     Dosage: 800 MG, QD
     Route: 048
     Dates: start: 20110209
  9. NEXAVAR [Suspect]
     Dosage: 600 MG, QD
     Route: 048
     Dates: start: 20110106, end: 20110208
  10. NEXAVAR [Suspect]
     Dosage: 200 MG, BID
     Route: 048
     Dates: start: 20101218, end: 20110105
  11. DIPYRONE TAB [Concomitant]
     Dosage: 40 GTT, TID
     Route: 048
     Dates: start: 20101210, end: 20110110

REACTIONS (6)
  - SKIN EXFOLIATION [None]
  - BLISTER [None]
  - VARICES OESOPHAGEAL [None]
  - ERYTHEMA [None]
  - THROMBOCYTOPENIA [None]
  - EPISTAXIS [None]
